FAERS Safety Report 4468156-2 (Version None)
Quarter: 2004Q4

REPORT INFORMATION
  Report Type: 
  Country: None (occurrence: None)
  Receive Date: 20041001
  Receipt Date: 20040916
  Transmission Date: 20050328
  Serious: Yes (Death, Life-Threatening, Disabling, Other)
  Sender: FDA-Public Use
  Company Number: C2003-1822.06

PATIENT
  Age: 17 Year
  Sex: Male

DRUGS (13)
  1. CYSTAGON [Suspect]
     Indication: CYSTINOSIS
     Dosage: 150 MG BID ORAL
     Route: 048
     Dates: start: 19830101, end: 19960101
  2. CYSTAGON [Suspect]
     Indication: RENAL DISORDER
     Dosage: 150 MG BID ORAL
     Route: 048
     Dates: start: 19830101, end: 19960101
  3. CYSTEAMINE EYE DROPS SIGMA TAU [Suspect]
     Dates: start: 19900401, end: 19960101
  4. PHOSLO [Concomitant]
  5. NIFEDIPINE [Concomitant]
  6. FLUOXETINE [Concomitant]
  7. OMEPRAZOLE [Concomitant]
  8. FOLIC ACID [Concomitant]
  9. CYCLOSPORINE [Concomitant]
  10. AZATHIOPRINE [Concomitant]
  11. PREDNISONE [Concomitant]
  12. FUROSEMIDE [Concomitant]
  13. NIFEDIPINE [Concomitant]

REACTIONS (6)
  - ATROPHY [None]
  - BLINDNESS [None]
  - CSF PRESSURE DECREASED [None]
  - HEADACHE [None]
  - KIDNEY TRANSPLANT REJECTION [None]
  - TREATMENT NONCOMPLIANCE [None]
